FAERS Safety Report 4428451-X (Version None)
Quarter: 2004Q3

REPORT INFORMATION
  Report Type: 
  Country: None (occurrence: None)
  Receive Date: 20040813
  Receipt Date: 20040804
  Transmission Date: 20050211
  Serious: Yes (Hospitalization)
  Sender: FDA-Public Use
  Company Number: PERI00204002697

PATIENT
  Age: 53 Year
  Sex: Male

DRUGS (2)
  1. COVERSYL (PERINDOPRIL) [Suspect]
     Indication: ILL-DEFINED DISORDER
     Dosage: 4 MG QD PO
     Route: 048
     Dates: start: 20040101
  2. BENDROFLUAZIDE [Concomitant]

REACTIONS (1)
  - PSYCHOTIC DISORDER [None]
